FAERS Safety Report 23218579 (Version 2)
Quarter: 2023Q4

REPORT INFORMATION
  Report Type: Report from Study
  Country: JP (occurrence: JP)
  Receive Date: 20231122
  Receipt Date: 20231127
  Transmission Date: 20240109
  Serious: Yes (Death)
  Sender: FDA-Public Use
  Company Number: JP-Eisai-202310177_LEN-EC_P_1

PATIENT
  Age: 54 Year
  Sex: Female
  Weight: 54 kg

DRUGS (11)
  1. LENVIMA [Suspect]
     Active Substance: LENVATINIB
     Indication: Endometrial cancer recurrent
     Route: 048
     Dates: start: 20230517, end: 20230610
  2. LENVIMA [Suspect]
     Active Substance: LENVATINIB
     Route: 048
     Dates: start: 20230706, end: 20230726
  3. KEYTRUDA [Suspect]
     Active Substance: PEMBROLIZUMAB
     Indication: Endometrial cancer recurrent
     Route: 042
     Dates: start: 20230517, end: 20230705
  4. LOXOPROFEN [Suspect]
     Active Substance: LOXOPROFEN
     Indication: Back pain
     Dosage: AS NEEDED FOR PAIN, PERORAL MEDICINE
     Dates: end: 20230614
  5. CLOBETASOL [Concomitant]
     Active Substance: CLOBETASOL
     Indication: Erythema multiforme
     Dosage: BID, OPTIMAL DOSE
     Dates: start: 20230610
  6. LOCOID [Concomitant]
     Active Substance: HYDROCORTISONE BUTYRATE
     Indication: Erythema multiforme
     Dosage: BID, OPTIMAL DOSE
     Dates: start: 20230610
  7. GLYCOSAMINOGLYCANS [Concomitant]
     Active Substance: GLYCOSAMINOGLYCANS
     Indication: Palmar-plantar erythrodysaesthesia syndrome
     Dosage: BID, OPTIMAL DOSE
     Dates: start: 20230726
  8. GLYCOSAMINOGLYCANS [Concomitant]
     Active Substance: GLYCOSAMINOGLYCANS
     Dosage: BID, OPTIMAL DOSE
     Dates: start: 20230717
  9. ANTEBATE:OINTMENT [Concomitant]
     Indication: Palmar-plantar erythrodysaesthesia syndrome
     Dosage: BID, OPTIMAL DOSE
     Dates: start: 20230726
  10. CALONAL [Concomitant]
     Active Substance: ACETAMINOPHEN
     Indication: Pain in extremity
     Dosage: PERORAL MEDICINE
     Dates: start: 20230726
  11. NITROFURANTOIN [Concomitant]
     Active Substance: NITROFURANTOIN
     Indication: Taste disorder
     Dates: start: 20230726

REACTIONS (1)
  - Malignant neoplasm progression [Fatal]

NARRATIVE: CASE EVENT DATE: 20230828
